FAERS Safety Report 4350818-9 (Version None)
Quarter: 2004Q2

REPORT INFORMATION
  Report Type: 
  Country: None (occurrence: None)
  Receive Date: 20040428
  Receipt Date: 20040420
  Transmission Date: 20050107
  Serious: Yes (Hospitalization)
  Sender: FDA-Public Use
  Company Number: 2004207908US

PATIENT
  Age: 69 Year
  Sex: Female
  Weight: 94.3 kg

DRUGS (10)
  1. CELEBREX [Suspect]
     Indication: NON-SMALL CELL LUNG CANCER
     Dosage: 400 MG, BID, ORAL
     Route: 048
     Dates: start: 20040225
  2. COMPARATOR-GEMCITABINE (GEMCITABINE) INJECTION [Suspect]
     Indication: NON-SMALL CELL LUNG CANCER
     Dosage: 1000 MG/M2, IV
     Route: 042
     Dates: start: 20040225, end: 20040303
  3. CARBOPLATIN [Suspect]
     Indication: NON-SMALL CELL LUNG CANCER
     Dosage: SINGLE
     Dates: start: 20040225, end: 20040225
  4. CELEBREX [Concomitant]
  5. LEVOTHYROXINE SODIUM [Concomitant]
  6. MULTIVITAMINS (ERGOCALCIFEROL, RETINALM, PANTHENOL) [Concomitant]
  7. NICOTINE RESIN (NICOTINE RESIN) [Concomitant]
  8. ALBUTEROL [Concomitant]
  9. ATROVENT [Concomitant]
  10. XANAX [Concomitant]

REACTIONS (15)
  - ASTHMA [None]
  - ATELECTASIS [None]
  - BLOOD PRESSURE SYSTOLIC INCREASED [None]
  - CHEST DISCOMFORT [None]
  - CHEST PAIN [None]
  - CHRONIC OBSTRUCTIVE AIRWAYS DISEASE [None]
  - DYSPNOEA EXERTIONAL [None]
  - ELECTROCARDIOGRAM ST-T CHANGE [None]
  - HAEMATOCRIT DECREASED [None]
  - HAEMOGLOBIN DECREASED [None]
  - NEUTROPHIL COUNT INCREASED [None]
  - SUPRAVENTRICULAR EXTRASYSTOLES [None]
  - THROMBOCYTOPENIA [None]
  - WHITE BLOOD CELL COUNT DECREASED [None]
  - WHITE BLOOD CELL COUNT INCREASED [None]
